FAERS Safety Report 7867970-0 (Version None)
Quarter: 2011Q4

REPORT INFORMATION
  Report Type: 
  Country: None (occurrence: None)
  Receive Date: 20111028
  Receipt Date: 20111021
  Transmission Date: 20120403
  Serious: Yes (Other)
  Sender: FDA-Public Use
  Company Number: US-AMGEN-USASP2011054692

PATIENT
  Age: 55 Year
  Sex: Female

DRUGS (2)
  1. ENBREL [Suspect]
     Indication: ANKYLOSING SPONDYLITIS
     Dosage: 50 MG, QWK
     Dates: start: 20070801
  2. CELEBREX [Suspect]
     Dosage: UNK

REACTIONS (5)
  - JOINT SWELLING [None]
  - UTERINE CANCER [None]
  - ARTHRALGIA [None]
  - INCISION SITE HAEMORRHAGE [None]
  - NECK PAIN [None]
